FAERS Safety Report 24085122 (Version 7)
Quarter: 2024Q4

REPORT INFORMATION
  Report Type: Report from Study
  Country: US (occurrence: US)
  Receive Date: 20240712
  Receipt Date: 20241022
  Transmission Date: 20250115
  Serious: Yes (Hospitalization, Other)
  Sender: TAKEDA
  Company Number: US-TAKEDA-2024TUS069154

PATIENT
  Age: 55 Year
  Sex: Female
  Weight: 121.99 kg

DRUGS (7)
  1. FRUQUINTINIB [Suspect]
     Active Substance: FRUQUINTINIB
     Indication: Colon cancer
     Dosage: 5 MILLIGRAM
     Route: 048
     Dates: start: 20240628
  2. FRUQUINTINIB [Suspect]
     Active Substance: FRUQUINTINIB
     Dosage: 5 MILLIGRAM
     Route: 048
  3. FENTANYL [Suspect]
     Active Substance: FENTANYL
     Indication: Pain
     Dosage: 25 MICROGRAM
     Route: 062
  4. FENTANYL [Suspect]
     Active Substance: FENTANYL
     Dosage: 50 MICROGRAM
     Route: 062
  5. FENTANYL [Suspect]
     Active Substance: FENTANYL
     Dosage: 75 MICROGRAM
     Route: 062
  6. METHOCARBAMOL [Concomitant]
     Active Substance: METHOCARBAMOL
     Dosage: UNK
     Route: 065
  7. OMEPRAZOLE [Concomitant]
     Active Substance: OMEPRAZOLE
     Dosage: UNK
     Route: 065

REACTIONS (7)
  - Metastases to bone marrow [Unknown]
  - Metastases to lung [Unknown]
  - Vocal cord paralysis [Unknown]
  - Carcinoembryonic antigen increased [Unknown]
  - Vaginal haemorrhage [Unknown]
  - Pain [Unknown]
  - Fatigue [Unknown]

NARRATIVE: CASE EVENT DATE: 20240701
